FAERS Safety Report 8172888-2 (Version None)
Quarter: 2012Q1

REPORT INFORMATION
  Report Type: 
  Country: None (occurrence: None)
  Receive Date: 20120229
  Receipt Date: 20120229
  Transmission Date: 20120608
  Serious: Yes (Life-Threatening)
  Sender: FDA-Public Use
  Company Number: None

PATIENT
  Age: 74 Year
  Sex: Female
  Weight: 49.895 kg

DRUGS (2)
  1. CYMBALTA [Suspect]
     Indication: DEPRESSION
     Route: 048
     Dates: start: 20120101, end: 20120223
  2. CYMBALTA [Suspect]
     Indication: ARTHRITIS
     Route: 048
     Dates: start: 20120101, end: 20120223

REACTIONS (11)
  - ANXIETY [None]
  - FEAR [None]
  - HEART RATE IRREGULAR [None]
  - PARANOIA [None]
  - NAUSEA [None]
  - FEELING ABNORMAL [None]
  - DYSPNOEA [None]
  - TREMOR [None]
  - CRYING [None]
  - SUICIDAL IDEATION [None]
  - ASTHENIA [None]
